FAERS Safety Report 6296593-2 (Version None)
Quarter: 2009Q3

REPORT INFORMATION
  Report Type: 
  Country: None (occurrence: None)
  Receive Date: 20090804
  Receipt Date: 20090731
  Transmission Date: 20100115
  Serious: Yes (Other)
  Sender: FDA-Public Use
  Company Number: US-MERCK-0905USA02249

PATIENT
  Age: 8 Year
  Sex: Female
  Weight: 54 kg

DRUGS (2)
  1. SINGULAIR [Suspect]
     Route: 048
     Dates: end: 20080701
  2. SYNTHROID [Concomitant]
     Indication: AUTOIMMUNE THYROIDITIS
     Route: 065
     Dates: start: 20071101

REACTIONS (2)
  - GRAND MAL CONVULSION [None]
  - SLEEP TERROR [None]
